FAERS Safety Report 21737394 (Version 1)
Quarter: 2022Q4

REPORT INFORMATION
  Report Type: Spontaneous
  Country: US (occurrence: US)
  Receive Date: 20221216
  Receipt Date: 20221216
  Transmission Date: 20230113
  Serious: No
  Sender: FDA-Public Use
  Company Number: US-drreddys-SPO/USA/22/0158152

PATIENT
  Age: 72 Year
  Sex: Male

DRUGS (14)
  1. FENTANYL CITRATE [Suspect]
     Active Substance: FENTANYL CITRATE
     Indication: Epidural analgesia
     Dosage: BASAL RATE 6 ML/H, PATIENT-CONTROLLED BOLUS DOSE 2 ML/DOSE WITH A 15-MIN LOCKOUT, MAXIMUM DOSE 18 ML
     Route: 008
  2. KETAMINE [Concomitant]
     Active Substance: KETAMINE
     Indication: Analgesic therapy
     Route: 042
  3. BUPIVACAINE [Concomitant]
     Active Substance: BUPIVACAINE
     Indication: Epidural analgesia
     Dosage: BASAL RATE 6 ML/H, PATIENT-CONTROLLED BOLUS DOSE 2 ML/DOSE WITH A 15-MIN LOCKOUT, MAXIMUM DOSE 18 ML
     Route: 008
  4. BUPIVACAINE [Concomitant]
     Active Substance: BUPIVACAINE
     Indication: Nerve block
     Dosage: LIPOSOMAL, 266 MG
  5. BUPIVACAINE [Concomitant]
     Active Substance: BUPIVACAINE
  6. BUPIVACAINE [Concomitant]
     Active Substance: BUPIVACAINE
     Dosage: IN DIVIDED DOSES
     Route: 008
  7. IBUPROFEN [Concomitant]
     Active Substance: IBUPROFEN
     Indication: Analgesic therapy
     Route: 048
  8. ACETAMINOPHEN [Concomitant]
     Active Substance: ACETAMINOPHEN
     Indication: Analgesic therapy
     Route: 048
  9. ACETAMINOPHEN [Concomitant]
     Active Substance: ACETAMINOPHEN
     Route: 048
  10. OXYCODONE [Concomitant]
     Active Substance: OXYCODONE
     Indication: Analgesic therapy
     Route: 048
  11. OXYCODONE [Concomitant]
     Active Substance: OXYCODONE
     Route: 048
  12. DEXMEDETOMIDINE [Concomitant]
     Active Substance: DEXMEDETOMIDINE
     Indication: Analgesic therapy
     Dosage: 0.3-0.4 MCG/KG/H
  13. DEXMEDETOMIDINE [Concomitant]
     Active Substance: DEXMEDETOMIDINE
     Dosage: 0.3?0.4 MCG/KG/H
  14. KETOROLAC [Concomitant]
     Active Substance: KETOROLAC TROMETHAMINE
     Indication: Analgesic therapy
     Route: 042

REACTIONS (1)
  - Dizziness [Recovered/Resolved]
